FAERS Safety Report 16257635 (Version 1)
Quarter: 2019Q2

REPORT INFORMATION
  Report Type: Report from Study
  Country: US (occurrence: US)
  Receive Date: 20190430
  Receipt Date: 20190430
  Transmission Date: 20190711
  Serious: No
  Sender: FDA-Public Use
  Company Number: US-AGIOS-1904US01115

PATIENT

DRUGS (2)
  1. TIBSOVO [Suspect]
     Active Substance: IVOSIDENIB
     Indication: ACUTE MYELOID LEUKAEMIA
     Dosage: 250 MILLIGRAM, QD
     Route: 048
  2. TIBSOVO [Suspect]
     Active Substance: IVOSIDENIB
     Dosage: 250 MILLIGRAM, QOD
     Route: 048

REACTIONS (2)
  - Off label use [Unknown]
  - Full blood count decreased [Unknown]
